FAERS Safety Report 25972367 (Version 1)
Quarter: 2025Q4

REPORT INFORMATION
  Report Type: Spontaneous
  Country: EU (occurrence: EU)
  Receive Date: 20251029
  Receipt Date: 20251029
  Transmission Date: 20260117
  Serious: Yes (Other)
  Sender: ABBVIE
  Company Number: None

PATIENT
  Age: 78 Year
  Sex: Female
  Weight: 61 kg

DRUGS (6)
  1. IMBRUVICA [Suspect]
     Active Substance: IBRUTINIB
     Indication: Mantle cell lymphoma
     Dosage: FILM-COATED TABLETS
     Route: 048
     Dates: start: 20191013, end: 20250926
  2. Atorvastatine sun [Concomitant]
     Indication: Product used for unknown indication
     Dosage: 20 MG PER DAY, FILM-COATED TABLET
     Route: 048
  3. SPIRONOLACTONE [Concomitant]
     Active Substance: SPIRONOLACTONE
     Indication: Cardiac failure
     Dosage: 25MG PER DAY
     Route: 048
  4. Trifas [Concomitant]
     Indication: Cardiac failure
     Dosage: 50MG PER DAY
     Route: 048
  5. BISOPROLOL [Concomitant]
     Active Substance: BISOPROLOL
     Indication: Product used for unknown indication
     Dosage: 5MG PER DAY
     Route: 048
  6. APIXABAN [Concomitant]
     Active Substance: APIXABAN
     Indication: Product used for unknown indication
     Dosage: 5MG PER DAY, FILM-COATED TABLET
     Route: 048

REACTIONS (5)
  - Cutaneous vasculitis [Not Recovered/Not Resolved]
  - Swelling [Not Recovered/Not Resolved]
  - Erythema [Not Recovered/Not Resolved]
  - Skin discolouration [Not Recovered/Not Resolved]
  - Pyrexia [Not Recovered/Not Resolved]

NARRATIVE: CASE EVENT DATE: 20241201
